FAERS Safety Report 6685017-9 (Version None)
Quarter: 2010Q2

REPORT INFORMATION
  Report Type: 
  Country: None (occurrence: None)
  Receive Date: 20100416
  Receipt Date: 20100416
  Transmission Date: 20101027
  Serious: Yes (Other)
  Sender: FDA-Public Use
  Company Number: NSADSS2002045613

PATIENT
  Sex: Female
  Weight: 53.52 kg

DRUGS (9)
  1. LEVAQUIN [Suspect]
     Indication: URINARY TRACT INFECTION
     Route: 048
     Dates: start: 20021115, end: 20021119
  2. INSULIN [Concomitant]
     Indication: DIABETES MELLITUS
     Route: 065
  3. PRAVACHOL [Concomitant]
     Indication: HYPERLIPIDAEMIA
     Route: 048
  4. COZAAR [Concomitant]
     Indication: RENAL TRANSPLANT
     Route: 065
  5. COZAAR [Concomitant]
     Indication: HYPERTENSION
     Route: 065
  6. PROTONICS [Concomitant]
     Indication: GASTROOESOPHAGEAL REFLUX DISEASE
     Route: 048
  7. ZOLOFT [Concomitant]
     Indication: DEPRESSION
  8. FLORINEF [Concomitant]
     Indication: ADDISON'S DISEASE
     Route: 048
  9. PREDNISONE [Concomitant]
     Indication: ADDISON'S DISEASE
     Route: 048

REACTIONS (5)
  - CHOLESTASIS [None]
  - HEPATIC FUNCTION ABNORMAL [None]
  - HYPERGLYCAEMIA [None]
  - HYPOGLYCAEMIA [None]
  - MYALGIA [None]
